FAERS Safety Report 4332627-X (Version None)
Quarter: 2004Q2

REPORT INFORMATION
  Report Type: 
  Country: None (occurrence: None)
  Receive Date: 20040406
  Receipt Date: 20040324
  Transmission Date: 20050107
  Serious: Yes (Hospitalization)
  Sender: FDA-Public Use
  Company Number: PHFR2004GB01529

PATIENT
  Sex: Female

DRUGS (6)
  1. FORADIL [Suspect]
     Indication: CHRONIC OBSTRUCTIVE AIRWAYS DISEASE
     Route: 065
  2. SPIRIVA ^BOEHRINGER INGELHEIM^ [Concomitant]
  3. THEOPHYLLINE [Concomitant]
  4. ALBUTEROL SULFATE [Concomitant]
  5. ORAMORPH SR [Concomitant]
  6. OXYGEN [Concomitant]

REACTIONS (2)
  - CHOKING [None]
  - INCREASED VISCOSITY OF BRONCHIAL SECRETION [None]
